FAERS Safety Report 6796395-4 (Version None)
Quarter: 2010Q2

REPORT INFORMATION
  Report Type: 
  Country: None (occurrence: None)
  Receive Date: 20100622
  Receipt Date: 20100610
  Transmission Date: 20101027
  Serious: Yes (Disabling, Other)
  Sender: FDA-Public Use
  Company Number: 2010-00601

PATIENT
  Age: 49 Year
  Sex: Female

DRUGS (3)
  1. SIMVASTATIN [Suspect]
     Indication: HYPERLIPIDAEMIA
     Dosage: UNKNOWN (UNK), ORAL
     Route: 048
     Dates: start: 20091126
  2. METFORMIN (UNKNOWN) [Suspect]
     Indication: DIABETES MELLITUS
     Dosage: 1500 IU (D), ORAL
     Route: 048
     Dates: start: 20090828
  3. LNORGESTRELO, ESTRADIOL VALERATE (CYCLOPROGYNOVA) (UNKNOWN) [Concomitant]

REACTIONS (1)
  - PEMPHIGUS [None]
